FAERS Safety Report 22244111 (Version 2)
Quarter: 2023Q2

REPORT INFORMATION
  Report Type: Spontaneous
  Country: JP (occurrence: JP)
  Receive Date: 20230424
  Receipt Date: 20230525
  Transmission Date: 20230721
  Serious: Yes (Hospitalization, Other)
  Sender: FDA-Public Use
  Company Number: JP-SA-2023SA122575

PATIENT
  Age: 20 Year
  Sex: Male

DRUGS (16)
  1. ALPROLIX [Suspect]
     Active Substance: EFTRENONACOG ALFA
     Indication: Factor IX deficiency
     Dosage: 3000 U, QW
     Route: 042
     Dates: start: 20190124
  2. ALPROLIX [Suspect]
     Active Substance: EFTRENONACOG ALFA
     Indication: Factor IX deficiency
     Dosage: 3000 U, QW
     Route: 042
     Dates: start: 20190124
  3. ALPROLIX [Suspect]
     Active Substance: EFTRENONACOG ALFA
     Dosage: UNK
     Route: 042
     Dates: start: 20221225
  4. ALPROLIX [Suspect]
     Active Substance: EFTRENONACOG ALFA
     Dosage: UNK
     Route: 042
     Dates: start: 20221225
  5. ALPROLIX [Suspect]
     Active Substance: EFTRENONACOG ALFA
     Dosage: 4000 U, TIW
     Route: 042
     Dates: start: 20230312, end: 20230317
  6. ALPROLIX [Suspect]
     Active Substance: EFTRENONACOG ALFA
     Dosage: 4000 U, TIW
     Route: 042
     Dates: start: 20230312, end: 20230317
  7. ALPROLIX [Suspect]
     Active Substance: EFTRENONACOG ALFA
     Dosage: 4000 U, 1X
     Route: 042
     Dates: start: 20230321, end: 20230321
  8. ALPROLIX [Suspect]
     Active Substance: EFTRENONACOG ALFA
     Dosage: 4000 U, 1X
     Route: 042
     Dates: start: 20230321, end: 20230321
  9. ALPROLIX [Suspect]
     Active Substance: EFTRENONACOG ALFA
     Dosage: 4000 U, 1X
     Route: 042
     Dates: start: 20230326, end: 20230326
  10. ALPROLIX [Suspect]
     Active Substance: EFTRENONACOG ALFA
     Dosage: 4000 U, 1X
     Route: 042
     Dates: start: 20230326, end: 20230326
  11. ALPROLIX [Suspect]
     Active Substance: EFTRENONACOG ALFA
     Dosage: 4000 U, 1X
     Route: 042
     Dates: start: 20230331, end: 20230331
  12. ALPROLIX [Suspect]
     Active Substance: EFTRENONACOG ALFA
     Dosage: 4000 U, 1X
     Route: 042
     Dates: start: 20230331, end: 20230331
  13. ALPROLIX [Suspect]
     Active Substance: EFTRENONACOG ALFA
     Dosage: 4000 U, QW
     Route: 042
     Dates: start: 20230401
  14. ALPROLIX [Suspect]
     Active Substance: EFTRENONACOG ALFA
     Dosage: 4000 U, QW
     Route: 042
     Dates: start: 20230401
  15. ALPROLIX [Suspect]
     Active Substance: EFTRENONACOG ALFA
     Dosage: 3000 U, 1X
     Route: 042
     Dates: start: 20230417, end: 20230417
  16. ALPROLIX [Suspect]
     Active Substance: EFTRENONACOG ALFA
     Dosage: 3000 U, 1X
     Route: 042
     Dates: start: 20230417, end: 20230417

REACTIONS (4)
  - Extradural haematoma [Recovered/Resolved with Sequelae]
  - Feeling abnormal [Unknown]
  - Swelling face [Unknown]
  - Dizziness [Unknown]

NARRATIVE: CASE EVENT DATE: 20221225
